FAERS Safety Report 4377725-X (Version None)
Quarter: 2004Q2

REPORT INFORMATION
  Report Type: 
  Country: None (occurrence: None)
  Receive Date: 20040608
  Receipt Date: 20040526
  Transmission Date: 20050107
  Serious: Yes (Disabling)
  Sender: FDA-Public Use
  Company Number: STA-AE-04-MTX-238

PATIENT
  Age: 74 Year
  Sex: Female

DRUGS (6)
  1. METHOTREXATE [Suspect]
     Indication: RHEUMATOID ARTHRITIS
     Dosage: 10 MG,
     Dates: end: 20020101
  2. PREDNISOLONE [Concomitant]
  3. ACETAMINOPHEN [Concomitant]
  4. QUININE SULFATE [Concomitant]
  5. FOLIC ACID [Concomitant]
  6. ASPIRIN [Concomitant]

REACTIONS (2)
  - MENTAL IMPAIRMENT [None]
  - PSYCHOTIC DISORDER [None]
